FAERS Safety Report 5875001-7 (Version None)
Quarter: 2008Q3

REPORT INFORMATION
  Report Type: 
  Country: None (occurrence: None)
  Receive Date: 20080908
  Receipt Date: 20080908
  Transmission Date: 20090109
  Serious: Yes (Death)
  Sender: FDA-Public Use
  Company Number: None

PATIENT
  Age: 26 Year
  Sex: Male
  Weight: 215.4586 kg

DRUGS (1)
  1. CLARITHROMYCIN [Suspect]
     Indication: SINUSITIS
     Dosage: 1   2 TIMES DAILY  (DURATION: 1 TIME)
     Dates: start: 20080517, end: 20080517

REACTIONS (2)
  - CONVULSION [None]
  - DRUG HYPERSENSITIVITY [None]
